FAERS Safety Report 25735244 (Version 1)
Quarter: 2025Q3

REPORT INFORMATION
  Report Type: Spontaneous
  Country: US (occurrence: US)
  Receive Date: 20250828
  Receipt Date: 20250828
  Transmission Date: 20251020
  Serious: No
  Sender: CURIUM PHARMACEUTICALS
  Company Number: US-CURIUM-2025000538

PATIENT

DRUGS (1)
  1. IOFLUPANE I 123 [Suspect]
     Active Substance: IOFLUPANE I-123
     Indication: Dopamine transporter scintigraphy
     Route: 051
     Dates: start: 20250724, end: 20250724

REACTIONS (2)
  - Dopamine transporter scintigraphy abnormal [Not Recovered/Not Resolved]
  - Drug ineffective [Not Recovered/Not Resolved]

NARRATIVE: CASE EVENT DATE: 20250724
